FAERS Safety Report 4596280-2 (Version None)
Quarter: 2005Q1

REPORT INFORMATION
  Report Type: 
  Country: None (occurrence: None)
  Receive Date: 20050224
  Receipt Date: 20050214
  Transmission Date: 20050727
  Serious: Yes (Death)
  Sender: FDA-Public Use
  Company Number: A-CH2005-08742

PATIENT
  Age: 20 Month
  Sex: Male

DRUGS (6)
  1. TRACLEER [Suspect]
     Indication: PULMONARY HYPERTENSION
     Dosage: 15.625 MG, BID, ORAL
     Route: 048
     Dates: start: 20040915
  2. BUSULFAN [Concomitant]
  3. BACTRIM [Concomitant]
  4. FERROUS FUMARATE [Concomitant]
  5. MOTILIUM [Concomitant]
  6. UVESTEROL (ASCORBIC ACID, ERGOCALCIFEROL, RETINOL, TOCOPHEROL) [Concomitant]

REACTIONS (2)
  - CARDIAC OPERATION [None]
  - PROCEDURAL COMPLICATION [None]
